FAERS Safety Report 10103312 (Version 1)
Quarter: 2014Q2

REPORT INFORMATION
  Report Type: Report from Study
  Country: DE (occurrence: DE)
  Receive Date: 20140424
  Receipt Date: 20140424
  Transmission Date: 20141212
  Serious: Yes (Hospitalization)
  Sender: FDA-Public Use
  Company Number: DE-GLAXOSMITHKLINE-D0083660A

PATIENT
  Age: 57 Year
  Sex: Male
  Weight: 106 kg

DRUGS (3)
  1. VIANI [Suspect]
     Indication: CHRONIC OBSTRUCTIVE PULMONARY DISEASE
     Route: 055
  2. SPIRIVA [Concomitant]
     Indication: CHRONIC OBSTRUCTIVE PULMONARY DISEASE
     Route: 055
  3. LISINOPRIL [Concomitant]
     Route: 048

REACTIONS (2)
  - Upper respiratory fungal infection [Recovered/Resolved]
  - Biopsy trachea [Recovered/Resolved]
